FAERS Safety Report 6700797-1 (Version None)
Quarter: 2010Q2

REPORT INFORMATION
  Report Type: 
  Country: None (occurrence: None)
  Receive Date: 20100428
  Receipt Date: 20100422
  Transmission Date: 20101027
  Serious: Yes (Hospitalization)
  Sender: FDA-Public Use
  Company Number: US-ELI_LILLY_AND_COMPANY-US201004006321

PATIENT
  Sex: Female

DRUGS (3)
  1. HUMULIN 70/30 [Suspect]
     Indication: DIABETES MELLITUS
     Dosage: 74 U, 2/D
     Dates: start: 20060101
  2. HUMULIN R [Suspect]
     Indication: DIABETES MELLITUS
     Dosage: UNK, AS NEEDED
     Dates: start: 20060101
  3. HUMULIN R [Suspect]
     Dosage: UNK, AS NEEDED
     Dates: start: 20060101

REACTIONS (18)
  - AMNESIA [None]
  - ANKLE OPERATION [None]
  - ARTHRALGIA [None]
  - ASTHENIA [None]
  - BLOOD GLUCOSE DECREASED [None]
  - BLOOD GLUCOSE INCREASED [None]
  - CALCINOSIS [None]
  - CARTILAGE INJURY [None]
  - CEREBRAL ARTERY OCCLUSION [None]
  - LACRIMATION INCREASED [None]
  - MALAISE [None]
  - OEDEMA PERIPHERAL [None]
  - PAIN [None]
  - PROCEDURAL NAUSEA [None]
  - RESTLESS LEGS SYNDROME [None]
  - RHINORRHOEA [None]
  - SINUS DISORDER [None]
  - VOMITING [None]
